FAERS Safety Report 8259991-3 (Version None)
Quarter: 2012Q2

REPORT INFORMATION
  Report Type: 
  Country: None (occurrence: None)
  Receive Date: 20120404
  Receipt Date: 20120326
  Transmission Date: 20120825
  Serious: Yes (Other)
  Sender: FDA-Public Use
  Company Number: DE-ABBOTT-12P-062-0918645-00

PATIENT
  Sex: Male
  Weight: 95 kg

DRUGS (2)
  1. IBUPROFEN [Concomitant]
     Indication: PRODUCT USED FOR UNKNOWN INDICATION
     Dates: start: 20090801
  2. HUMIRA [Suspect]
     Indication: ANKYLOSING SPONDYLITIS
     Route: 058
     Dates: start: 20110513

REACTIONS (4)
  - PAIN [None]
  - ANKLE FRACTURE [None]
  - ACCIDENT AT WORK [None]
  - UNEVALUABLE EVENT [None]
